FAERS Safety Report 12501656 (Version 2)
Quarter: 2016Q3

REPORT INFORMATION
  Report Type: Spontaneous
  Country: CH (occurrence: CH)
  Receive Date: 20160627
  Receipt Date: 20160728
  Transmission Date: 20161109
  Serious: Yes (Hospitalization)
  Sender: FDA-Public Use
  Company Number: CH-009507513-1606CHE012509

PATIENT
  Age: 74 Year
  Sex: Male

DRUGS (7)
  1. AMIODARONE [Interacting]
     Active Substance: AMIODARONE
     Indication: ATRIAL FIBRILLATION
     Dosage: 200 MG PER DAY, MAINTENANCE THERAPY
     Route: 048
  2. AMIODARONE [Interacting]
     Active Substance: AMIODARONE
     Dosage: 200 MG PER DAY, MAINTENANCE THERAPY
     Route: 048
  3. AMIODARONE [Interacting]
     Active Substance: AMIODARONE
     Indication: TACHYCARDIA
     Dosage: 10 G CUMULATIVE UNTIL THE NINTH DAY
  4. HEPARIN [Concomitant]
     Active Substance: HEPARIN SODIUM
  5. SIMVASTATIN. [Suspect]
     Active Substance: SIMVASTATIN
     Dosage: 40 MG, QD
  6. AMIODARONE [Interacting]
     Active Substance: AMIODARONE
     Dosage: 10 G CUMULATIVE UNTIL THE NINTH DAY
  7. FLOXACILLIN [Concomitant]
     Active Substance: FLUCLOXACILLIN
     Indication: ANTIBIOTIC THERAPY
     Route: 042

REACTIONS (3)
  - Renal failure [Recovered/Resolved]
  - Drug interaction [Recovered/Resolved]
  - Rhabdomyolysis [Recovered/Resolved]
